FAERS Safety Report 17213399 (Version 1)
Quarter: 2019Q4

REPORT INFORMATION
  Report Type: Spontaneous
  Country: US (occurrence: US)
  Receive Date: 20191205
  Receipt Date: 20191205
  Transmission Date: 20200122
  Serious: Yes (Hospitalization)
  Sender: FDA-Public Use
  Company Number: None

PATIENT
  Age: 53 Year
  Sex: Male

DRUGS (16)
  1. NIVESTYM [Suspect]
     Active Substance: FILGRASTIM-AAFI
     Indication: PLASMA CELL MYELOMA
  2. AMLODIPINE [Concomitant]
     Active Substance: AMLODIPINE BESYLATE
  3. ATORVASTATIN [Concomitant]
     Active Substance: ATORVASTATIN
  4. GLYBURIDE. [Concomitant]
     Active Substance: GLYBURIDE
  5. HYDRALAZINE [Concomitant]
     Active Substance: HYDRALAZINE HYDROCHLORIDE
  6. SMZ/TMP [Concomitant]
     Active Substance: SULFAMETHOXAZOLE\TRIMETHOPRIM
  7. FOBIC [Concomitant]
  8. VELCADE [Suspect]
     Active Substance: BORTEZOMIB
     Indication: PLASMA CELL MYELOMA
     Route: 058
     Dates: start: 20190627
  9. XARELTO [Concomitant]
     Active Substance: RIVAROXABAN
  10. ALLOPURINOL. [Concomitant]
     Active Substance: ALLOPURINOL
  11. ALOGLIPTIN. [Concomitant]
     Active Substance: ALOGLIPTIN
  12. ACYCLOVIR. [Concomitant]
     Active Substance: ACYCLOVIR
  13. CHLORHEX [Concomitant]
     Active Substance: CHLORHEXIDINE GLUCONATE
  14. METOPROLOL TARTRATE. [Concomitant]
     Active Substance: METOPROLOL TARTRATE
  15. ONDANSETRON [Concomitant]
     Active Substance: ONDANSETRON
  16. DEXAMETHASON [Concomitant]
     Active Substance: DEXAMETHASONE

REACTIONS (1)
  - Stem cell transplant [None]
